FAERS Safety Report 4596330-3 (Version None)
Quarter: 2005Q1

REPORT INFORMATION
  Report Type: 
  Country: None (occurrence: None)
  Receive Date: 20050225
  Receipt Date: 20050210
  Transmission Date: 20050727
  Serious: Yes (Hospitalization)
  Sender: FDA-Public Use
  Company Number: 2005AP01165

PATIENT
  Age: 78 Year
  Sex: Male

DRUGS (2)
  1. CASODEX [Suspect]
     Indication: PROSTATE CANCER
     Dosage: 80 MG DAILY PO
     Route: 048
     Dates: start: 20030301
  2. ZOLADEX [Suspect]
     Indication: PROSTATE CANCER
     Dosage: 3.6 MG Q4WK SQ
     Dates: start: 20030301

REACTIONS (1)
  - HAEMOLYTIC ANAEMIA [None]
